FAERS Safety Report 10642631 (Version 1)
Quarter: 2014Q4

REPORT INFORMATION
  Report Type: Spontaneous
  Country: BR (occurrence: BR)
  Receive Date: 20141210
  Receipt Date: 20141210
  Transmission Date: 20150529
  Serious: Yes (Other)
  Sender: FDA-Public Use
  Company Number: BR-ELI_LILLY_AND_COMPANY-BR201412003226

PATIENT
  Sex: Female
  Weight: 45 kg

DRUGS (1)
  1. PRASUGREL HYDROCHLORIDE [Suspect]
     Active Substance: PRASUGREL HYDROCHLORIDE
     Indication: PRODUCT USED FOR UNKNOWN INDICATION
     Dosage: 5 MG, QD
     Route: 048
     Dates: end: 20141124

REACTIONS (3)
  - Arrhythmia [Not Recovered/Not Resolved]
  - Loss of consciousness [Recovered/Resolved]
  - Dizziness [Not Recovered/Not Resolved]
